FAERS Safety Report 8294621-6 (Version None)
Quarter: 2012Q2

REPORT INFORMATION
  Report Type: 
  Country: None (occurrence: None)
  Receive Date: 20120418
  Receipt Date: 20120411
  Transmission Date: 20120825
  Serious: Yes (Hospitalization)
  Sender: FDA-Public Use
  Company Number: US-JNJFOC-20120402207

PATIENT
  Sex: Female

DRUGS (4)
  1. ISONIAZID [Suspect]
     Indication: TUBERCULOSIS
     Route: 065
  2. SIMVASTATIN [Concomitant]
     Route: 065
  3. STELARA [Suspect]
     Indication: PSORIASIS
     Dosage: ADMINISTERED IN JANUARY
     Route: 058
  4. STELARA [Suspect]
     Dosage: ADMINISTERED IN DECEMBER
     Route: 058

REACTIONS (1)
  - ACUTE HEPATIC FAILURE [None]
